FAERS Safety Report 6264474-6 (Version None)
Quarter: 2009Q3

REPORT INFORMATION
  Report Type: 
  Country: None (occurrence: None)
  Receive Date: 20090708
  Receipt Date: 20090708
  Transmission Date: 20100115
  Serious: Yes (Life-Threatening, Hospitalization)
  Sender: FDA-Public Use
  Company Number: None

PATIENT
  Sex: Female
  Weight: 54.4316 kg

DRUGS (2)
  1. CIPROFLOXACIN HCL [Suspect]
     Dosage: 5 PILLS 1 TAB 4X MOUTH
     Route: 048
     Dates: start: 20090606, end: 20090607
  2. FLAGYL [Suspect]
     Dosage: 8 TABS 1 TAB 2 X DAY MOUTH
     Route: 048
     Dates: start: 20090606, end: 20090607

REACTIONS (1)
  - RENAL IMPAIRMENT [None]
